FAERS Safety Report 18150762 (Version 1)
Quarter: 2020Q3

REPORT INFORMATION
  Report Type: Spontaneous
  Country: US (occurrence: US)
  Receive Date: 20200814
  Receipt Date: 20200814
  Transmission Date: 20201103
  Serious: Yes (Life-Threatening, Hospitalization, Other)
  Sender: FDA-Public Use
  Company Number: US-BAYER-2020-163779

PATIENT
  Age: 33 Year
  Sex: Female

DRUGS (17)
  1. ONDANSETRON [Suspect]
     Active Substance: ONDANSETRON
  2. IPRATROPIUM [Concomitant]
     Active Substance: IPRATROPIUM
  3. OXYCODONE HYDROCHLORIDE;PARACETAMOL [Suspect]
     Active Substance: ACETAMINOPHEN\OXYCODONE HYDROCHLORIDE
  4. LORAZEPAM. [Suspect]
     Active Substance: LORAZEPAM
  5. METHADONE [Suspect]
     Active Substance: METHADONE HYDROCHLORIDE
  6. BUPRENORPHINE HCL AND NALOXONE HCL [Suspect]
     Active Substance: BUPRENORPHINE HYDROCHLORIDE\NALOXONE HYDROCHLORIDE
  7. CEFEPIME [Concomitant]
     Active Substance: CEFEPIME HYDROCHLORIDE
  8. SALBUTAMOL [Concomitant]
     Active Substance: ALBUTEROL
  9. ALKA?SELTZER PLUS SORE THROAT RELIEF HONEY LEMON FLAVOR [Suspect]
     Active Substance: ACETAMINOPHEN
  10. FAMOTIDINE. [Suspect]
     Active Substance: FAMOTIDINE
  11. METHADONE [Suspect]
     Active Substance: METHADONE HYDROCHLORIDE
  12. QUETIAPINE. [Suspect]
     Active Substance: QUETIAPINE
     Indication: ANXIETY
  13. HYDROMORPHONE [Suspect]
     Active Substance: HYDROMORPHONE
  14. CALCIUM GLUCONATE. [Suspect]
     Active Substance: CALCIUM GLUCONATE
  15. METRONIDAZOLE. [Suspect]
     Active Substance: METRONIDAZOLE
  16. KETOROLAC [Suspect]
     Active Substance: KETOROLAC TROMETHAMINE
  17. DIPHENHYDRAMINE. [Concomitant]
     Active Substance: DIPHENHYDRAMINE

REACTIONS (9)
  - Intestinal perforation [Recovering/Resolving]
  - Small intestinal obstruction [Recovering/Resolving]
  - Anxiety [Recovering/Resolving]
  - Drug withdrawal syndrome [Recovering/Resolving]
  - Ileus [Recovering/Resolving]
  - Colitis ischaemic [Recovering/Resolving]
  - Faecaloma [Recovering/Resolving]
  - Restlessness [Recovering/Resolving]
  - Constipation [Recovering/Resolving]
